FAERS Safety Report 6689775-9 (Version None)
Quarter: 2010Q2

REPORT INFORMATION
  Report Type: 
  Country: None (occurrence: None)
  Receive Date: 20100421
  Receipt Date: 20100406
  Transmission Date: 20101027
  Serious: Yes (Other)
  Sender: FDA-Public Use
  Company Number: JP-MYLANLABS-2010S1005756

PATIENT
  Age: 74 Year
  Sex: Female
  Weight: 38 kg

DRUGS (18)
  1. DEXMEDETOMIDINE HYDROCHLORIDE [Interacting]
     Indication: BLOOD PRESSURE FLUCTUATION
     Route: 065
  2. DEXMEDETOMIDINE HYDROCHLORIDE [Interacting]
     Route: 065
  3. MIDAZOLAM HCL [Interacting]
     Indication: INDUCTION OF ANAESTHESIA
     Route: 065
  4. FENTANYL [Suspect]
     Indication: INDUCTION OF ANAESTHESIA
     Route: 065
  5. FENTANYL [Interacting]
     Indication: MAINTENANCE OF ANAESTHESIA
     Route: 065
  6. FENTANYL [Interacting]
     Indication: BLOOD PRESSURE FLUCTUATION
     Route: 065
  7. FENTANYL [Interacting]
     Route: 065
  8. FENTANYL [Interacting]
     Route: 065
  9. FENTANYL [Interacting]
     Route: 065
  10. FENTANYL [Interacting]
     Route: 065
  11. FENTANYL [Interacting]
     Route: 065
  12. FENTANYL [Interacting]
     Route: 065
  13. VECURONIUM BROMIDE [Interacting]
     Indication: HYPOTONIA
     Route: 065
  14. SEVOFLURANE [Interacting]
     Indication: MAINTENANCE OF ANAESTHESIA
     Dosage: 1-1.5%
     Route: 065
  15. REMIFENTANIL [Interacting]
     Indication: MAINTENANCE OF ANAESTHESIA
     Dosage: 0.1-0.15 MICROG/KG/MIN
     Route: 065
  16. PROPOFOL [Interacting]
     Indication: BLOOD PRESSURE FLUCTUATION
     Route: 065
  17. PROPOFOL [Interacting]
     Route: 065
  18. LEVOTHYROXINE SODIUM [Concomitant]
     Indication: HYPOTHYROIDISM
     Route: 065

REACTIONS (3)
  - APNOEA [None]
  - DRUG INTERACTION [None]
  - RESPIRATORY DEPRESSION [None]
